FAERS Safety Report 5953054-5 (Version None)
Quarter: 2008Q4

REPORT INFORMATION
  Report Type: 
  Country: None (occurrence: None)
  Receive Date: 20081114
  Receipt Date: 20081001
  Transmission Date: 20090506
  Serious: Yes (Hospitalization)
  Sender: FDA-Public Use
  Company Number: US-BRISTOL-MYERS SQUIBB COMPANY-14356786

PATIENT
  Age: 57 Year
  Sex: Female

DRUGS (3)
  1. IXEMPRA KIT [Suspect]
     Indication: BREAST CANCER METASTATIC
     Dosage: RECEIVED 4 CYCLES; FOURTH INFUSION ON 10-AUG-2008
  2. AVASTIN [Suspect]
  3. DEXAMETHASONE 0.5MG TAB [Concomitant]
     Indication: PREMEDICATION

REACTIONS (6)
  - BONE PAIN [None]
  - DEHYDRATION [None]
  - MUCOSAL INFLAMMATION [None]
  - NAUSEA [None]
  - PYREXIA [None]
  - VOMITING [None]
